FAERS Safety Report 24116879 (Version 1)
Quarter: 2024Q3

REPORT INFORMATION
  Report Type: Spontaneous
  Country: US (occurrence: US)
  Receive Date: 20240722
  Receipt Date: 20240722
  Transmission Date: 20241016
  Serious: No
  Sender: ROCHE
  Company Number: US-ROCHE-10000030075

PATIENT
  Age: 25 Year
  Sex: Female
  Weight: 72.57 kg

DRUGS (3)
  1. XOLAIR [Suspect]
     Active Substance: OMALIZUMAB
     Indication: Urticaria chronic
     Dosage: ONCE EVER OTHER MONTH
     Route: 058
     Dates: start: 2020
  2. SYNTHROID [Concomitant]
     Active Substance: LEVOTHYROXINE SODIUM
     Dosage: 125 MCG
     Route: 048
     Dates: start: 2015
  3. DROSPIRENONE [Concomitant]
     Active Substance: DROSPIRENONE
     Dosage: 3/0.03 MG
     Route: 048
     Dates: start: 2009

REACTIONS (2)
  - Intentional product misuse [Not Recovered/Not Resolved]
  - Urticaria [Unknown]

NARRATIVE: CASE EVENT DATE: 20200101
